FAERS Safety Report 8793931 (Version 5)
Quarter: 2013Q2

REPORT INFORMATION
  Report Type: Report from Study
  Country: JP (occurrence: JP)
  Receive Date: 20120918
  Receipt Date: 20130422
  Transmission Date: 20140414
  Serious: Yes (Other)
  Sender: FDA-Public Use
  Company Number: JP-009507513-1209JPN005105

PATIENT
  Age: 57 Year
  Sex: Male
  Weight: 79 kg

DRUGS (15)
  1. PEGINTRON [Suspect]
     Indication: CHRONIC HEPATITIS C
     Dosage: 1.5 MICROGRAM PER KILOGRAM,QW
     Route: 058
     Dates: start: 20120611, end: 20121122
  2. REBETOL [Suspect]
     Indication: CHRONIC HEPATITIS C
     Dosage: 800 MG, QD
     Route: 048
     Dates: start: 20120611, end: 20120624
  3. REBETOL [Suspect]
     Dosage: 600 MG, QD
     Route: 048
     Dates: start: 20120624, end: 20120718
  4. REBETOL [Suspect]
     Dosage: 400 MG, QD
     Route: 048
     Dates: start: 20120719, end: 20121003
  5. REBETOL [Suspect]
     Dosage: 600 MG,QD
     Route: 048
     Dates: start: 20121004, end: 20121031
  6. REBETOL [Suspect]
     Dosage: 800 MG, QD
     Route: 048
     Dates: start: 20121101, end: 20121129
  7. TELAVIC [Suspect]
     Indication: CHRONIC HEPATITIS C
     Dosage: 2250 MG, QD
     Route: 048
     Dates: start: 20120611, end: 20120905
  8. FEBURIC [Concomitant]
     Indication: HYPERURICAEMIA
     Dosage: 10 MG, QD, FORMULATION: POR
     Route: 048
     Dates: start: 20120614, end: 20120709
  9. FEBURIC [Concomitant]
     Indication: RENAL IMPAIRMENT
     Dosage: 20 MG, QD, FORMULATION: POR
     Route: 048
     Dates: start: 20120710, end: 20120730
  10. FEBURIC [Concomitant]
     Dosage: 30 MG, QD, FORMULATION: POR
     Route: 048
     Dates: start: 20120731, end: 20120806
  11. FEBURIC [Concomitant]
     Dosage: 40 MG, QD, FORMULATION: POR
     Route: 048
     Dates: start: 20120807, end: 20120813
  12. FEBURIC [Concomitant]
     Dosage: 50 MG, QD, FORMULATION: POR
     Route: 048
     Dates: start: 20120814, end: 20120820
  13. FEBURIC [Concomitant]
     Dosage: 60 MG, QD, FORMULATION: POR
     Route: 048
     Dates: start: 20120821, end: 20120912
  14. FEBURIC [Concomitant]
     Dosage: 40 MG, QD, FORMULATION: POR
     Route: 048
     Dates: start: 20120913, end: 20121003
  15. FEBURIC [Concomitant]
     Dosage: 20 MG, QD, FORMULATION: POR
     Route: 048
     Dates: start: 20121004, end: 20121031

REACTIONS (2)
  - Hyperuricaemia [Recovered/Resolved]
  - Renal impairment [Recovered/Resolved]
